FAERS Safety Report 13703288 (Version 1)
Quarter: 2017Q2

REPORT INFORMATION
  Report Type: Spontaneous
  Country: DE (occurrence: DE)
  Receive Date: 20170629
  Receipt Date: 20170629
  Transmission Date: 20170830
  Serious: Yes (Other)
  Sender: FDA-Public Use
  Company Number: GXKR2017DE003485

PATIENT
  Age: 63 Year
  Sex: Female

DRUGS (1)
  1. AMIOHEXAL [Suspect]
     Active Substance: AMIODARONE
     Indication: PRODUCT USED FOR UNKNOWN INDICATION
     Dosage: 200 MG, ONCE DAILY
     Route: 048
     Dates: start: 2016

REACTIONS (2)
  - Pulmonary fibrosis [Unknown]
  - Pulmonary hypertension [Unknown]

NARRATIVE: CASE EVENT DATE: 201706
